FAERS Safety Report 24907181 (Version 1)
Quarter: 2025Q1

REPORT INFORMATION
  Report Type: Spontaneous
  Country: US (occurrence: US)
  Receive Date: 20250130
  Receipt Date: 20250130
  Transmission Date: 20250408
  Serious: No
  Sender: SANOFI AVENTIS
  Company Number: US-SA-2025SA028773

PATIENT
  Age: 4 Year
  Sex: Male
  Weight: 17.27 kg

DRUGS (1)
  1. DUPIXENT [Suspect]
     Active Substance: DUPILUMAB
     Indication: Illness
     Dosage: 300 MG, Q4W
     Route: 058

REACTIONS (2)
  - Injection site pain [Recovered/Resolved]
  - Condition aggravated [Recovered/Resolved]
